FAERS Safety Report 8437549-0 (Version None)
Quarter: 2012Q2

REPORT INFORMATION
  Report Type: 
  Country: None (occurrence: None)
  Receive Date: 20120614
  Receipt Date: 20120422
  Transmission Date: 20120825
  Serious: No
  Sender: FDA-Public Use
  Company Number: US-AMGEN-USASP2012025335

PATIENT
  Age: 71 Year
  Sex: Female

DRUGS (9)
  1. MOBIC [Concomitant]
  2. OXYCODONE HCL [Concomitant]
  3. NUVIGIL [Concomitant]
  4. XANAX [Concomitant]
  5. ABILIFY [Concomitant]
  6. ADDERALL 5 [Concomitant]
     Dosage: UNK
     Dates: end: 20120401
  7. CYMBALTA [Concomitant]
  8. PROLIA [Suspect]
     Indication: OSTEOPENIA
     Dosage: 60 MG, Q6MO
     Dates: start: 20120327
  9. METHOCARBAMOL [Concomitant]

REACTIONS (9)
  - JOINT RANGE OF MOTION DECREASED [None]
  - SPINAL COLUMN STENOSIS [None]
  - FATIGUE [None]
  - PARAESTHESIA [None]
  - OCCIPITAL NEURALGIA [None]
  - PAIN IN EXTREMITY [None]
  - NECK PAIN [None]
  - HYPOAESTHESIA [None]
  - MUSCULOSKELETAL PAIN [None]
